FAERS Safety Report 5670477-2 (Version None)
Quarter: 2008Q1

REPORT INFORMATION
  Report Type: 
  Country: None (occurrence: None)
  Receive Date: 20080318
  Receipt Date: 20080306
  Transmission Date: 20080703
  Serious: Yes (Death, Hospitalization)
  Sender: FDA-Public Use
  Company Number: GB-ELI_LILLY_AND_COMPANY-GB200707006169

PATIENT
  Sex: Male
  Weight: 79 kg

DRUGS (10)
  1. ALIMTA [Suspect]
     Indication: MESOTHELIOMA
     Dosage: 950 MG, UNKNOWN
     Route: 065
     Dates: start: 20070611
  2. CISPLATIN [Concomitant]
  3. VITAMIN B-12 [Concomitant]
  4. FOLIC ACID [Concomitant]
  5. SIMVASTATIN [Concomitant]
     Indication: BLOOD CHOLESTEROL INCREASED
     Dosage: 40 MG, DAILY (1/D)
     Route: 065
  6. OMEPRAZOLE [Concomitant]
     Indication: REFLUX GASTRITIS
     Dosage: 40 MG, DAILY (1/D)
     Route: 065
  7. OXYCONTIN [Concomitant]
     Indication: CHEST PAIN
     Dosage: 60 MG, 2/D
     Route: 065
     Dates: start: 20070515
  8. PARACETAMOL [Concomitant]
     Indication: CHEST PAIN
     Dosage: 1 G, 4/D
     Route: 065
     Dates: start: 20070525
  9. MOVICOL [Concomitant]
     Indication: CONSTIPATION
     Dosage: 1 D/F, AS NEEDED
     Route: 065
     Dates: start: 20070501
  10. METOCLOPRAMIDE [Concomitant]
     Indication: NAUSEA
     Dosage: 10 MG, AS NEEDED
     Route: 065
     Dates: start: 20070501

REACTIONS (8)
  - AGITATION [None]
  - ANXIETY [None]
  - DEPRESSED LEVEL OF CONSCIOUSNESS [None]
  - GENERAL PHYSICAL HEALTH DETERIORATION [None]
  - MESOTHELIOMA [None]
  - PAIN [None]
  - PLEURITIC PAIN [None]
  - SOMNOLENCE [None]
